FAERS Safety Report 9312170 (Version 1)
Quarter: 2013Q1

REPORT INFORMATION
  Report Type: Spontaneous
  Country: US (occurrence: None)
  Receive Date: 20130226
  Receipt Date: 20130226
  Transmission Date: 20140127
  Serious: Yes (Hospitalization)
  Sender: FDA-Public Use
  Company Number: 2011-113

PATIENT
  Age: 40 Year
  Sex: Male

DRUGS (3)
  1. PRIALT (ZICONOTIDE) INTRATHECAL INFUSION [Suspect]
     Dosage: UNK UG, ONCE/HOUR
     Route: 037
  2. BUPIVACAINE [Suspect]
     Dosage: UNK MG, ONCE/HOUR
     Route: 037
  3. DILAUDID (HYDROMORPHONE HYDROCHLORIDE) INJECTION [Suspect]
     Dosage: UNK MG, ONCE/HOUR
     Route: 037

REACTIONS (3)
  - Overdose [None]
  - Unresponsive to stimuli [None]
  - Pain [None]
